FAERS Safety Report 12308793 (Version 1)
Quarter: 2016Q2

REPORT INFORMATION
  Report Type: Spontaneous
  Country: US (occurrence: None)
  Receive Date: 20160426
  Receipt Date: 20160426
  Transmission Date: 20160815
  Serious: Yes (Other)
  Sender: FDA-Public Use
  Company Number: None

PATIENT
  Age: 62 Year
  Sex: Female
  Weight: 56.7 kg

DRUGS (49)
  1. NATURAL THYROID COMPOUND [Concomitant]
  2. NEBULIZER WITH ALBUTEROL [Concomitant]
  3. ATIVAN [Concomitant]
     Active Substance: LORAZEPAM
  4. MIDRIN [Concomitant]
     Active Substance: ACETAMINOPHEN\DICHLORALPHENAZONE\ISOMETHEPTENE
  5. SLIPPERY ELM ULMS RUBRA [Concomitant]
  6. CEPHALEXIN 500MG CAPSULE, 500MG [Suspect]
     Active Substance: CEPHALEXIN
     Indication: CHRONIC SINUSITIS
     Route: 048
     Dates: start: 20160422, end: 20160425
  7. ZOVIRAX [Concomitant]
     Active Substance: ACYCLOVIR
  8. ALPRAZOLAM. [Concomitant]
     Active Substance: ALPRAZOLAM
  9. XANAX [Concomitant]
     Active Substance: ALPRAZOLAM
  10. OSTERA BONE REMODELING SUPPLEMENT [Concomitant]
  11. RESVERATROL [Concomitant]
     Active Substance: RESVERATROL
  12. VENTOLIN HFA ALBUTEROL INHALER [Concomitant]
  13. NEBULIZER WITH IPRATROPIUM BROMIDE [Concomitant]
  14. PROAIR HFA [Concomitant]
     Active Substance: ALBUTEROL SULFATE
  15. PATANOL OPTH [Concomitant]
  16. L-LYSINE [Concomitant]
     Active Substance: LYSINE
  17. METAGENICS ULTRAFLORA BALANCE [Concomitant]
     Active Substance: BIFIDOBACTERIUM SPP.\BIFIDOBACTERIUM LONGUM\LACTOBACILLUS ACIDOPHILUS
  18. IODINE KELP DROPS [Concomitant]
  19. ALIGN [Concomitant]
     Active Substance: BIFIDOBACTERIUM LONGUM SUBSP. INFANTIS
  20. MSM [Concomitant]
     Active Substance: DIMETHYL SULFONE
  21. ASTAXANTHIN [Concomitant]
  22. ZINC [Concomitant]
     Active Substance: ZINC\ZINC CHLORIDE
  23. ALPHA-LOPIC ACID [Concomitant]
  24. CRANBERRY. [Concomitant]
     Active Substance: CRANBERRY
  25. ORGANIC COCONUT OIL [Concomitant]
  26. OSTEOFORCE SUPREME SUPPLEMENT [Concomitant]
  27. ADVACLEAR DETOXIFICATION [Concomitant]
  28. HOLY BASIL [Concomitant]
  29. UBIQUINOL COQ12 [Concomitant]
  30. REDUCED GLUTHATHIONE [Concomitant]
  31. CAT^S CALW BARK [Concomitant]
  32. CATECHOLACALM [Concomitant]
  33. PRIMROSE EXTRACT. [Concomitant]
     Active Substance: PRIMROSE EXTRACT
  34. MAGNESIUM [Concomitant]
     Active Substance: MAGNESIUM
  35. L-GLUTAMINE /00503401/ [Concomitant]
     Active Substance: GLUTAMINE
  36. GRAPE SEED EXTRACT [Concomitant]
     Active Substance: GRAPE SEED EXTRACT
  37. D-MANNOSE [Concomitant]
  38. GABA [Concomitant]
     Active Substance: .GAMMA.-AMINOBUTYRIC ACID
  39. NALTREXONE [Concomitant]
     Active Substance: NALTREXONE
  40. BIOSIL [Concomitant]
  41. ASHWAGANDHA EXTRACT [Concomitant]
  42. TURMERIC SPCIES [Concomitant]
  43. RETIN-A [Concomitant]
     Active Substance: TRETINOIN
  44. SEROSYN [Concomitant]
  45. PROBIOTIC CULTURELLE [Concomitant]
  46. TRUNATURE [Concomitant]
  47. SELENIUM [Concomitant]
     Active Substance: SELENIUM
  48. MARSHMALLOW [Concomitant]
     Active Substance: ALCOHOL
  49. GINGER TEAS [Concomitant]

REACTIONS (5)
  - Renal pain [None]
  - Ear pain [None]
  - Hypersensitivity [None]
  - Ear discomfort [None]
  - Pain [None]

NARRATIVE: CASE EVENT DATE: 20160425
